FAERS Safety Report 9883722 (Version 2)
Quarter: 2014Q2

REPORT INFORMATION
  Report Type: Spontaneous
  Country: US (occurrence: US)
  Receive Date: 20140210
  Receipt Date: 20140423
  Transmission Date: 20141212
  Serious: No
  Sender: FDA-Public Use
  Company Number: US-009507513-1401USA011692

PATIENT
  Age: 47 Year
  Sex: Female

DRUGS (2)
  1. EMEND [Suspect]
     Indication: PROCEDURAL NAUSEA
     Dosage: 40 MG, QD
     Route: 048
     Dates: start: 20140122, end: 20140122
  2. EMEND [Suspect]
     Indication: PROCEDURAL VOMITING

REACTIONS (5)
  - Nausea [Unknown]
  - Vomiting [Unknown]
  - Drug dose omission [Unknown]
  - Drug dispensing error [Unknown]
  - Product quality issue [Unknown]
